FAERS Safety Report 19731951 (Version 1)
Quarter: 2021Q3

REPORT INFORMATION
  Report Type: Spontaneous
  Country: US (occurrence: US)
  Receive Date: 20210820
  Receipt Date: 20210820
  Transmission Date: 20211014
  Serious: No
  Sender: FDA-Public Use
  Company Number: None

PATIENT
  Sex: Female

DRUGS (1)
  1. TECFIDERA [Suspect]
     Active Substance: DIMETHYL FUMARATE
     Indication: MULTIPLE SCLEROSIS
     Route: 048
     Dates: start: 20201202

REACTIONS (6)
  - Arthralgia [None]
  - Rhinorrhoea [None]
  - Nausea [None]
  - Pulmonary congestion [None]
  - Inflammatory marker increased [None]
  - Chills [None]
